FAERS Safety Report 7474045-1 (Version None)
Quarter: 2011Q2

REPORT INFORMATION
  Report Type: 
  Country: None (occurrence: None)
  Receive Date: 20110511
  Receipt Date: 20110204
  Transmission Date: 20111010
  Serious: Yes (Other)
  Sender: FDA-Public Use
  Company Number: PHHY2010US89458

PATIENT
  Sex: Female

DRUGS (5)
  1. GILENYA [Suspect]
     Indication: RELAPSING-REMITTING MULTIPLE SCLEROSIS
     Dosage: 0.5 MG, QD
     Route: 048
     Dates: start: 20101201
  2. ANTIDEPRESSANTS [Concomitant]
  3. EFFEXOR [Concomitant]
  4. MIRAPEX [Concomitant]
  5. KADIAN [Concomitant]

REACTIONS (2)
  - OEDEMA PERIPHERAL [None]
  - FLUID RETENTION [None]
